FAERS Safety Report 20107777 (Version 1)
Quarter: 2021Q4

REPORT INFORMATION
  Report Type: Spontaneous
  Country: US (occurrence: US)
  Receive Date: 20211124
  Receipt Date: 20211124
  Transmission Date: 20220303
  Serious: No
  Sender: FDA-Public Use
  Company Number: US-PERRIGO-21US001750

PATIENT
  Age: 60 Year
  Sex: Female
  Weight: 90.703 kg

DRUGS (15)
  1. POLYETHYLENE GLYCOL 3350 [Suspect]
     Active Substance: POLYETHYLENE GLYCOL 3350
     Indication: Constipation prophylaxis
     Dosage: 34 G, NIGHTLY
     Route: 048
     Dates: start: 201908, end: 202101
  2. POLYETHYLENE GLYCOL 3350 [Suspect]
     Active Substance: POLYETHYLENE GLYCOL 3350
     Dosage: 34 G, NIGHTLY
     Route: 048
     Dates: start: 202101
  3. TRAZODONE [Concomitant]
     Active Substance: TRAZODONE HYDROCHLORIDE
     Indication: Insomnia
     Dosage: UP TO 500 MG, NIGHTLY
     Route: 065
     Dates: start: 1989
  4. CYMBALTA [Concomitant]
     Active Substance: DULOXETINE HYDROCHLORIDE
     Indication: Depression
     Dosage: 1 TABLET, QHS
     Route: 065
  5. CYMBALTA [Concomitant]
     Active Substance: DULOXETINE HYDROCHLORIDE
     Indication: Pain prophylaxis
  6. LAMICTAL [Concomitant]
     Active Substance: LAMOTRIGINE
     Indication: Bipolar disorder
     Dosage: 300 MG, BID
     Route: 065
     Dates: start: 2011
  7. LATUDA [Concomitant]
     Active Substance: LURASIDONE HYDROCHLORIDE
     Indication: Bipolar disorder
     Dosage: 80 MG, QHS
     Route: 065
     Dates: start: 201910
  8. METFORMIN [Concomitant]
     Active Substance: METFORMIN HYDROCHLORIDE
     Indication: Diabetes mellitus
     Dosage: 1500 MG IN AM
     Route: 065
     Dates: start: 201908
  9. METFORMIN [Concomitant]
     Active Substance: METFORMIN HYDROCHLORIDE
     Dosage: 500 MG, QHS
     Route: 065
     Dates: start: 201908
  10. JARDIANCE [Concomitant]
     Active Substance: EMPAGLIFLOZIN
     Indication: Diabetes mellitus
     Dosage: UNKNOWN, EVERY MORNING
     Route: 065
     Dates: start: 2020
  11. JANUVIA [Concomitant]
     Active Substance: SITAGLIPTIN PHOSPHATE
     Indication: Blood glucose increased
     Dosage: UNKNOWN, PRN
     Route: 065
     Dates: start: 201908
  12. LORAZEPAM [Concomitant]
     Active Substance: LORAZEPAM
     Indication: Stress
     Dosage: 1 MG, BID
     Route: 065
     Dates: start: 202011
  13. BENTYL [Concomitant]
     Active Substance: DICYCLOMINE HYDROCHLORIDE
     Indication: Irritable bowel syndrome
     Dosage: 20 MG, QID
     Route: 065
     Dates: start: 1986
  14. PROMETHAZINE [Concomitant]
     Active Substance: PROMETHAZINE HYDROCHLORIDE
     Indication: Nausea
     Dosage: 20 MG, TID
     Route: 065
     Dates: start: 2011
  15. ZOFRAN                             /00955301/ [Concomitant]
     Indication: Nausea
     Dosage: UP TO 4 TABLETS DAILY, PRN
     Route: 065
     Dates: start: 2015

REACTIONS (5)
  - Choking [Recovered/Resolved]
  - Oropharyngeal pain [Recovered/Resolved]
  - Throat irritation [Recovered/Resolved]
  - Off label use [Unknown]
  - Incorrect product administration duration [Unknown]

NARRATIVE: CASE EVENT DATE: 20190801
